FAERS Safety Report 6226423-6 (Version None)
Quarter: 2009Q2

REPORT INFORMATION
  Report Type: 
  Country: None (occurrence: None)
  Receive Date: 20090612
  Receipt Date: 20090514
  Transmission Date: 20091009
  Serious: No
  Sender: FDA-Public Use
  Company Number: US-ABBOTT-09P-163-0573611-00

PATIENT
  Sex: Female
  Weight: 50.848 kg

DRUGS (6)
  1. HUMIRA [Suspect]
     Indication: RHEUMATOID ARTHRITIS
     Route: 058
     Dates: start: 20070701
  2. METHOTREXATE [Concomitant]
     Indication: RHEUMATOID ARTHRITIS
  3. SEASONALE [Concomitant]
     Indication: DRUG USE FOR UNKNOWN INDICATION
  4. XANAX [Concomitant]
     Indication: ANXIETY
  5. PREDNISONE [Concomitant]
     Indication: RHEUMATOID ARTHRITIS
  6. ZYRTEC [Concomitant]
     Indication: HYPERSENSITIVITY

REACTIONS (1)
  - INAPPROPRIATE SCHEDULE OF DRUG ADMINISTRATION [None]
